FAERS Safety Report 5402232-2 (Version None)
Quarter: 2007Q3

REPORT INFORMATION
  Report Type: 
  Country: None (occurrence: None)
  Receive Date: 20070727
  Receipt Date: 20061117
  Transmission Date: 20080115
  Serious: Yes (Hospitalization, Other)
  Sender: FDA-Public Use
  Company Number: THYM-10843

PATIENT
  Age: 53 Year
  Sex: Female
  Weight: 77.1 kg

DRUGS (9)
  1. THYMOGLOBULIN [Suspect]
     Indication: LIVER TRANSPLANT
     Dosage: 1.5 MG/KG QD; IV
     Route: 042
     Dates: start: 20051219, end: 20051219
  2. THYMOGLOBULIN [Suspect]
     Indication: LIVER TRANSPLANT
     Dosage: 0.75 MG/KG QD; IV
     Route: 042
     Dates: start: 20051221, end: 20051222
  3. THYMOGLOBULIN [Suspect]
     Indication: LIVER TRANSPLANT
     Dosage: 1.5 MG/KG QD;IV
     Route: 042
     Dates: start: 20051225, end: 20051225
  4. MYFORTIC [Concomitant]
  5. PROGRAF [Concomitant]
  6. PREDNISONE TAB [Concomitant]
  7. PREVACID [Concomitant]
  8. LOPRESSOR [Concomitant]
  9. COLACE [Concomitant]

REACTIONS (3)
  - HAEMATOMA INFECTION [None]
  - INTRA-ABDOMINAL HAEMATOMA [None]
  - LIVER TRANSPLANT REJECTION [None]
